FAERS Safety Report 8048960-4 (Version None)
Quarter: 2012Q1

REPORT INFORMATION
  Report Type: 
  Country: None (occurrence: None)
  Receive Date: 20120117
  Receipt Date: 20120113
  Transmission Date: 20120608
  Serious: Yes (Life-Threatening, Hospitalization)
  Sender: FDA-Public Use
  Company Number: PHHY2011GB111717

PATIENT
  Age: 42 Year
  Sex: Male
  Weight: 104 kg

DRUGS (6)
  1. CLOZAPINE [Suspect]
     Dosage: 200 MG, BID
     Route: 048
     Dates: start: 20111202
  2. CYCLOPHOSPHAMIDE [Suspect]
     Indication: DIFFUSE LARGE B-CELL LYMPHOMA
     Dosage: 1600 MG, UNK
     Route: 042
     Dates: start: 20111122
  3. VINCRISTINE [Suspect]
     Indication: DIFFUSE LARGE B-CELL LYMPHOMA
     Dosage: 2 MG, UNK
     Route: 042
     Dates: start: 20111122
  4. NEUPOGEN [Suspect]
     Indication: DIFFUSE LARGE B-CELL LYMPHOMA
     Dosage: 800 MG, UNK
     Route: 042
     Dates: start: 20111123
  5. PREDNISOLONE [Suspect]
     Indication: DIFFUSE LARGE B-CELL LYMPHOMA
     Dosage: 60 MG, UNK
     Dates: start: 20111122
  6. CLOZAPINE [Suspect]
     Indication: SCHIZOPHRENIA
     Dosage: 200 MG, BID
     Route: 048
     Dates: start: 20100915, end: 20111201

REACTIONS (3)
  - LEUKOPENIA [None]
  - AGRANULOCYTOSIS [None]
  - NEUTROPENIA [None]
